FAERS Safety Report 4961212-1 (Version None)
Quarter: 2006Q1

REPORT INFORMATION
  Report Type: 
  Country: None (occurrence: None)
  Receive Date: 20060201
  Receipt Date: 20060201
  Transmission Date: 20060701
  Serious: No
  Sender: FDA-Public Use
  Company Number: 2005PV003683

PATIENT
  Age: 68 Year
  Sex: Female
  Weight: 58.0604 kg

DRUGS (6)
  1. BYETTA [Suspect]
     Indication: DIABETES MELLITUS NON-INSULIN-DEPENDENT
     Dosage: 5 MCG; BID; SC
     Route: 058
     Dates: start: 20051004
  2. GLUCOPHAGE [Concomitant]
  3. AVANDAMET [Concomitant]
  4. GLYBURIDE [Concomitant]
  5. AVANDIA [Concomitant]
  6. METFORMIN [Concomitant]

REACTIONS (7)
  - BLOOD GLUCOSE INCREASED [None]
  - HEADACHE [None]
  - NAUSEA [None]
  - OCULAR HYPERAEMIA [None]
  - PARAESTHESIA [None]
  - PERIPHERAL COLDNESS [None]
  - WEIGHT DECREASED [None]
